FAERS Safety Report 8891099 (Version 2)
Quarter: 2013Q1

REPORT INFORMATION
  Report Type: Spontaneous
  Country: US (occurrence: US)
  Receive Date: 20121107
  Receipt Date: 20130111
  Transmission Date: 20140127
  Serious: Yes (Hospitalization, Disabling, Other)
  Sender: FDA-Public Use
  Company Number: US-009507513-1206USA00835

PATIENT
  Sex: 0

DRUGS (8)
  1. FOSAMAX [Suspect]
     Indication: BONE LOSS
     Dosage: 70 MG, QW
     Route: 048
     Dates: start: 2004, end: 200806
  2. OS-CAL (CALCIUM CARBONATE) [Concomitant]
     Dosage: UNK, BID
     Dates: start: 2000, end: 2011
  3. CORTICOSTEROIDS (UNSPECIFIED) [Concomitant]
     Dosage: UNK
     Dates: start: 199008
  4. ALENDRONATE SODIUM [Suspect]
     Indication: BONE LOSS
     Dosage: 70 MG, QW
     Route: 048
     Dates: start: 200806, end: 201001
  5. ATENOLOL [Concomitant]
     Indication: HYPERTENSION
     Dosage: UNK
     Dates: start: 2003
  6. PLAQUENIL [Concomitant]
     Indication: ARTHRITIS
     Dosage: UNK
     Dates: start: 1997
  7. METHOTREXATE [Concomitant]
     Indication: ARTHRITIS
     Dosage: UNK
     Dates: start: 2000
  8. FOLIC ACID [Concomitant]
     Dosage: UNK
     Dates: start: 2000

REACTIONS (10)
  - Femur fracture [Not Recovered/Not Resolved]
  - Intramedullary rod insertion [Not Recovered/Not Resolved]
  - Femur fracture [Not Recovered/Not Resolved]
  - Femur fracture [Not Recovered/Not Resolved]
  - Osteoporosis [Not Recovered/Not Resolved]
  - Cholecystectomy [Unknown]
  - Fall [Unknown]
  - Ligament sprain [Unknown]
  - Ligament sprain [Unknown]
  - Gastrooesophageal reflux disease [Unknown]
